FAERS Safety Report 6680903-8 (Version None)
Quarter: 2010Q2

REPORT INFORMATION
  Report Type: 
  Country: None (occurrence: None)
  Receive Date: 20100414
  Receipt Date: 20100402
  Transmission Date: 20101027
  Serious: Yes (Hospitalization)
  Sender: FDA-Public Use
  Company Number: US-SANOFI-AVENTIS-2010SA018978

PATIENT
  Age: 71 Year
  Sex: Female
  Weight: 102.7 kg

DRUGS (4)
  1. MULTAQ [Suspect]
     Indication: ATRIAL FIBRILLATION
     Route: 048
     Dates: start: 20100201, end: 20100222
  2. COREG [Concomitant]
     Indication: BLOOD PRESSURE
     Route: 065
     Dates: start: 20050101, end: 20100201
  3. COREG [Concomitant]
     Route: 065
     Dates: start: 20100201
  4. LASIX [Concomitant]
     Indication: FLUID RETENTION
     Dates: start: 20050101

REACTIONS (7)
  - ASTHENIA [None]
  - CARDIAC FAILURE CONGESTIVE [None]
  - CONDITION AGGRAVATED [None]
  - DYSPNOEA [None]
  - GAIT DISTURBANCE [None]
  - HEART RATE INCREASED [None]
  - OEDEMA PERIPHERAL [None]
